FAERS Safety Report 5314439-3 (Version None)
Quarter: 2007Q2

REPORT INFORMATION
  Report Type: 
  Country: None (occurrence: None)
  Receive Date: 20070430
  Receipt Date: 20070430
  Transmission Date: 20071010
  Serious: Yes (Other)
  Sender: FDA-Public Use
  Company Number: None

PATIENT
  Sex: Female

DRUGS (1)
  1. AMLODIPINE BESYLATE [Suspect]
     Indication: HYPERTENSION
     Dates: start: 20070412, end: 20070422

REACTIONS (4)
  - ARTHRALGIA [None]
  - FATIGUE [None]
  - PELVIC PAIN [None]
  - PHARMACEUTICAL PRODUCT COMPLAINT [None]
